FAERS Safety Report 25493954 (Version 1)
Quarter: 2025Q2

REPORT INFORMATION
  Report Type: Spontaneous
  Country: CA (occurrence: CA)
  Receive Date: 20250630
  Receipt Date: 20250630
  Transmission Date: 20250717
  Serious: Yes (Life-Threatening, Hospitalization, Other)
  Sender: MYLAN
  Company Number: CA-MYLANLABS-2025M1054485

PATIENT
  Age: 7 Year
  Weight: 19 kg

DRUGS (5)
  1. ISOTRETINOIN [Suspect]
     Active Substance: ISOTRETINOIN
     Indication: Neuroblastoma
     Dosage: 60 MILLIGRAM, BID (2 EVERY 1 DAYS)
  2. GRANULOCYTE-MACROPHAGE COLONY-STIMULATING FACTOR [Suspect]
     Active Substance: GRANULOCYTE-MACROPHAGE COLONY-STIMULATING FACTOR
     Indication: Neutropenia
     Dosage: 210 MICROGRAM, QD (1 EVERY 1 DAYS)
  3. Ch 14.18 [Concomitant]
  4. ETOPOSIDE [Concomitant]
     Active Substance: ETOPOSIDE
  5. ALDESLEUKIN [Concomitant]
     Active Substance: ALDESLEUKIN

REACTIONS (1)
  - Anaphylactic shock [Recovered/Resolved]
